FAERS Safety Report 7979411-3 (Version None)
Quarter: 2011Q4

REPORT INFORMATION
  Report Type: 
  Country: None (occurrence: None)
  Receive Date: 20111209
  Receipt Date: 20111128
  Transmission Date: 20120403
  Serious: Yes (Hospitalization, Other)
  Sender: FDA-Public Use
  Company Number: 2011SP038238

PATIENT
  Sex: Male

DRUGS (4)
  1. PEG-INTRON [Suspect]
     Indication: HEPATITIS C
     Dosage: 150 MCG, QW
     Dates: start: 20110803
  2. RIBAVIRIN [Suspect]
     Indication: HEPATITIS C
     Dates: start: 20110803
  3. PEGASYS [Suspect]
     Indication: HEPATITIS C
     Dates: start: 20091201, end: 20101201
  4. COPEGUS [Suspect]
     Indication: PRODUCT USED FOR UNKNOWN INDICATION

REACTIONS (7)
  - WHITE BLOOD CELL DISORDER [None]
  - FEELING ABNORMAL [None]
  - INSOMNIA [None]
  - NEUROPATHY PERIPHERAL [None]
  - THERMAL BURN [None]
  - BLISTER [None]
  - INCORRECT STORAGE OF DRUG [None]
